FAERS Safety Report 8399458-5 (Version None)
Quarter: 2012Q1

REPORT INFORMATION
  Report Type: 
  Country: None (occurrence: None)
  Receive Date: 20120323
  Receipt Date: 20110303
  Transmission Date: 20120608
  Serious: Yes (Other)
  Sender: FDA-Public Use
  Company Number: 163-21880-11012492

PATIENT
  Age: 79 Year
  Sex: Male
  Weight: 77.1115 kg

DRUGS (16)
  1. ASPIRIN [Concomitant]
  2. GRAPE SEED (GRAPE SEED) [Concomitant]
  3. ASCORBIC ACID [Concomitant]
  4. STOOL SOFTENER (DOCUSATE SODIUM) [Concomitant]
  5. TURMERIC (TURMERIC) [Concomitant]
  6. REVLIMID [Suspect]
     Indication: MYELODYSPLASTIC SYNDROME
     Dosage: 10 MG, DAILY X 21 DAYS, PO
     Route: 048
     Dates: start: 20100601
  7. CO Q10 (UBIDECARENONE) [Concomitant]
  8. FISH OIL (FISH OIL) [Concomitant]
  9. NIASPAN [Concomitant]
  10. VITAMIN B12 [Concomitant]
  11. LYCOPENE (LYCOPENE) [Concomitant]
  12. METAMUCIL (METAMUCIL ^PROCTER + GAMBLE^) [Concomitant]
  13. VANTAS KIT (HISTRELIN ACETATE) [Concomitant]
  14. CENTRUM SILVER (CENTRUM SILVER) [Concomitant]
  15. LASIX [Concomitant]
  16. LUTEIN (XANTOFYL) [Concomitant]

REACTIONS (4)
  - PLATELET COUNT DECREASED [None]
  - NEUTROPHIL COUNT DECREASED [None]
  - DIZZINESS [None]
  - NAUSEA [None]
